FAERS Safety Report 6849790-9 (Version None)
Quarter: 2010Q3

REPORT INFORMATION
  Report Type: 
  Country: None (occurrence: None)
  Receive Date: 20100716
  Receipt Date: 20071006
  Transmission Date: 20110219
  Serious: No
  Sender: FDA-Public Use
  Company Number: US-PFIZER INC-2007084188

PATIENT
  Sex: Female
  Weight: 50 kg

DRUGS (6)
  1. CHANTIX [Suspect]
     Indication: SMOKING CESSATION THERAPY
     Dates: start: 20070801
  2. ALPRAZOLAM [Concomitant]
     Indication: ANXIETY
  3. STRATTERA [Concomitant]
     Indication: ATTENTION DEFICIT/HYPERACTIVITY DISORDER
  4. ORAL CONTRACEPTIVE NOS [Concomitant]
  5. PREDNISOLONE [Concomitant]
     Indication: HYPERSENSITIVITY
  6. ZOLPIDEM [Concomitant]

REACTIONS (7)
  - ENERGY INCREASED [None]
  - HYPERSENSITIVITY [None]
  - NAUSEA [None]
  - NECK PAIN [None]
  - POOR QUALITY SLEEP [None]
  - PSYCHIATRIC SYMPTOM [None]
  - UNEVALUABLE EVENT [None]
